FAERS Safety Report 9320329 (Version 1)
Quarter: 2013Q2

REPORT INFORMATION
  Report Type: Spontaneous
  Country: CA (occurrence: CA)
  Receive Date: 20130530
  Receipt Date: 20130530
  Transmission Date: 20140414
  Serious: Yes (Death)
  Sender: FDA-Public Use
  Company Number: CA-GILEAD-2013-0076065

PATIENT
  Sex: Female

DRUGS (8)
  1. AMBRISENTAN [Suspect]
     Indication: PULMONARY HYPERTENSION
     Dosage: 5MG PER DAY
     Route: 048
     Dates: start: 20130308
  2. RAMIPRIL [Concomitant]
  3. ATENOLOL [Concomitant]
  4. CITRULLINE [Concomitant]
  5. PLAVIX [Concomitant]
  6. IMOVANE [Concomitant]
  7. SPIRIVA [Concomitant]
  8. VENTOLIN                           /00139501/ [Concomitant]

REACTIONS (1)
  - Death [Fatal]
